FAERS Safety Report 8488518-6 (Version None)
Quarter: 2012Q3

REPORT INFORMATION
  Report Type: 
  Country: None (occurrence: None)
  Receive Date: 20120705
  Receipt Date: 20120627
  Transmission Date: 20120928
  Serious: Yes (Other)
  Sender: FDA-Public Use
  Company Number: FR-B.I. PHARMACEUTICALS,INC./RIDGEFIELD-2012-FF-00751FF

PATIENT
  Sex: Female
  Weight: 54 kg

DRUGS (7)
  1. KARDEGIC [Suspect]
     Dosage: 75 MG
     Dates: start: 20111207, end: 20120110
  2. KARDEGIC [Suspect]
     Dosage: 160 MG
  3. IPERTEN [Concomitant]
     Dosage: 10 MG
  4. LASIX [Concomitant]
     Dosage: 40 MG
  5. RAMIPRIL [Concomitant]
     Dosage: 2.5 MG
  6. PRADAXA [Suspect]
     Indication: ATRIAL FIBRILLATION
     Dosage: 150 MG
     Route: 048
     Dates: start: 20111207, end: 20120110
  7. CORDARONE [Concomitant]

REACTIONS (2)
  - RECTAL NEOPLASM [None]
  - RECTAL HAEMORRHAGE [None]
